FAERS Safety Report 18241136 (Version 1)
Quarter: 2020Q3

REPORT INFORMATION
  Report Type: Report from Study
  Country: MX (occurrence: MX)
  Receive Date: 20200908
  Receipt Date: 20200908
  Transmission Date: 20201103
  Serious: Yes (Other)
  Sender: FDA-Public Use
  Company Number: PHHY2018MX000489

PATIENT
  Sex: Female
  Weight: 78 kg

DRUGS (2)
  1. REVOLADE [Suspect]
     Active Substance: ELTROMBOPAG
     Dosage: 1 DF, QOD (2 AND HALF YEARS AGO)
     Route: 048
  2. REVOLADE [Suspect]
     Active Substance: ELTROMBOPAG
     Indication: PLATELET COUNT DECREASED
     Dosage: 1 DF, QD
     Route: 065

REACTIONS (8)
  - Cognitive disorder [Unknown]
  - Peripheral swelling [Unknown]
  - Off label use [Unknown]
  - Dysarthria [Unknown]
  - Hypoacusis [Unknown]
  - Arthralgia [Unknown]
  - Peripheral venous disease [Unknown]
  - Malaise [Unknown]
